FAERS Safety Report 25100365 (Version 1)
Quarter: 2025Q1

REPORT INFORMATION
  Report Type: Spontaneous
  Country: US (occurrence: None)
  Receive Date: 20250319
  Receipt Date: 20250319
  Transmission Date: 20250409
  Serious: Yes (Other)
  Sender: FDA-CTU
  Company Number: None

PATIENT
  Age: 36 Year
  Sex: Male

DRUGS (1)
  1. VYEPTI [Suspect]
     Active Substance: EPTINEZUMAB-JJMR
     Indication: Migraine
     Dates: start: 20250218, end: 20250218

REACTIONS (11)
  - Throat irritation [None]
  - Pruritus [None]
  - Nasal congestion [None]
  - Sneezing [None]
  - Wheezing [None]
  - Hyperhidrosis [None]
  - Anxiety [None]
  - Heart rate decreased [None]
  - Heart rate increased [None]
  - Oxygen saturation decreased [None]
  - Infusion related reaction [None]

NARRATIVE: CASE EVENT DATE: 20250218
